FAERS Safety Report 6638828-X (Version None)
Quarter: 2010Q1

REPORT INFORMATION
  Report Type: 
  Country: None (occurrence: None)
  Receive Date: 20100317
  Receipt Date: 20100312
  Transmission Date: 20100710
  Serious: Yes (Death, Hospitalization, Other)
  Sender: FDA-Public Use
  Company Number: DE-PFIZER INC-2010012712

PATIENT
  Age: 79 Year
  Sex: Male
  Weight: 100 kg

DRUGS (8)
  1. THELIN [Suspect]
     Indication: PULMONARY ARTERIAL HYPERTENSION
     Dosage: 100, EVERY DAY
     Route: 048
     Dates: start: 20090113
  2. SILDENAFIL CITRATE [Suspect]
     Indication: PULMONARY ARTERIAL HYPERTENSION
     Dosage: 20 MG, 3X/DAY
     Route: 048
     Dates: start: 20091008, end: 20100127
  3. TORASEMIDE [Concomitant]
     Dosage: UNK
     Dates: start: 20091008, end: 20100113
  4. LORZAAR [Concomitant]
     Dosage: UNK
     Dates: end: 20100113
  5. INSULIN [Concomitant]
     Indication: DIABETES MELLITUS
  6. MARCUMAR [Concomitant]
  7. XIPAMIDE [Concomitant]
     Dosage: 40 MG
  8. RAMIPRIL [Concomitant]

REACTIONS (1)
  - RIGHT VENTRICULAR FAILURE [None]
